FAERS Safety Report 10599244 (Version 1)
Quarter: 2014Q4

REPORT INFORMATION
  Report Type: Spontaneous
  Country: FR (occurrence: FR)
  Receive Date: 20141121
  Receipt Date: 20141121
  Transmission Date: 20150529
  Serious: Yes (Hospitalization)
  Sender: FDA-Public Use
  Company Number: FR-PFIZER INC-2014317509

PATIENT
  Age: 55 Year
  Sex: Female

DRUGS (13)
  1. LYRICA [Suspect]
     Active Substance: PREGABALIN
     Dosage: 300 MG, 2X/DAY
  2. LYRICA [Suspect]
     Active Substance: PREGABALIN
     Dosage: AROUND 70 DF OF 150 MG, SINGLE
     Dates: start: 20140811, end: 20140811
  3. LEXOMIL ROCHE [Suspect]
     Active Substance: BROMAZEPAM
     Dosage: 0.5 DF, 2X/DAY
  4. FLUOXETINE [Suspect]
     Active Substance: FLUOXETINE\FLUOXETINE HYDROCHLORIDE
     Dosage: UNK
     Route: 048
     Dates: start: 20140811, end: 20140811
  5. LEXOMIL ROCHE [Suspect]
     Active Substance: BROMAZEPAM
     Dosage: 90 DF OF 6 MG, SINGLE
     Route: 048
     Dates: start: 20140811, end: 20140811
  6. TERCIAN [Suspect]
     Active Substance: CYAMEMAZINE
     Dosage: 6 DFS DAILY
  7. ZOPICLONE [Suspect]
     Active Substance: ZOPICLONE
     Dosage: UNK, AS NEEDED
  8. ZOPICLONE [Suspect]
     Active Substance: ZOPICLONE
     Dosage: 28 DF, SINGLE
     Route: 048
     Dates: start: 20140811, end: 20140811
  9. SULFARLEM [Concomitant]
     Active Substance: ANETHOLTRITHION
  10. SPASFON [Concomitant]
     Active Substance: PHLOROGLUCINOL
  11. TERCIAN [Suspect]
     Active Substance: CYAMEMAZINE
     Dosage: 25 DF OF 100MG, SINGLE
     Route: 048
     Dates: start: 20140811, end: 20140811
  12. LYRICA [Suspect]
     Active Substance: PREGABALIN
     Dosage: AROUND 30 DF OF 200MG, SINGLE
     Dates: start: 20140811, end: 20140811
  13. FLUOXETINE [Suspect]
     Active Substance: FLUOXETINE\FLUOXETINE HYDROCHLORIDE
     Dosage: UNK
     Dates: start: 20140801

REACTIONS (6)
  - Pneumonia aspiration [Recovered/Resolved with Sequelae]
  - Agitation [None]
  - Somnolence [Recovered/Resolved]
  - Intentional overdose [Unknown]
  - Coma [Recovered/Resolved]
  - Suicide attempt [Recovered/Resolved]

NARRATIVE: CASE EVENT DATE: 20140811
